FAERS Safety Report 8009348-5 (Version None)
Quarter: 2011Q4

REPORT INFORMATION
  Report Type: 
  Country: None (occurrence: None)
  Receive Date: 20111227
  Receipt Date: 20111215
  Transmission Date: 20120403
  Serious: Yes (Other)
  Sender: FDA-Public Use
  Company Number: PHHY2011US55300

PATIENT
  Sex: Female

DRUGS (12)
  1. ATENOLOL [Concomitant]
  2. MAGNESIUM [Concomitant]
  3. FENTANYL [Concomitant]
  4. PROCHLORPERAZINE [Concomitant]
  5. ISOSORB                            /00586302/ [Concomitant]
  6. ZOFRAN [Concomitant]
  7. GLEEVEC [Suspect]
     Dosage: 400 MG, TWICE A DAY
     Route: 048
  8. ZOLOFT [Concomitant]
  9. HYDROCODONE [Concomitant]
  10. LOMOTIL [Concomitant]
  11. PRILOSEC [Concomitant]
  12. POTASSIUM [Concomitant]

REACTIONS (3)
  - HEMIANOPIA [None]
  - PERIORBITAL OEDEMA [None]
  - METASTASES TO LIVER [None]
